FAERS Safety Report 9483202 (Version 1)
Quarter: 2013Q3

REPORT INFORMATION
  Report Type: Spontaneous
  Country: US (occurrence: US)
  Receive Date: 20130828
  Receipt Date: 20130828
  Transmission Date: 20140515
  Serious: Yes (Hospitalization)
  Sender: FDA-Public Use
  Company Number: US-AMGEN-US196742

PATIENT
  Age: 75 Year
  Sex: Female

DRUGS (2)
  1. ETANERCEPT [Suspect]
     Indication: PSORIASIS
     Route: 065
  2. ETANERCEPT [Suspect]
     Indication: PSORIASIS
     Route: 065

REACTIONS (1)
  - Cardiac failure congestive [Unknown]
